FAERS Safety Report 10366184 (Version 2)
Quarter: 2015Q1

REPORT INFORMATION
  Report Type: Spontaneous
  Country: DK (occurrence: DK)
  Receive Date: 20140806
  Receipt Date: 20150324
  Transmission Date: 20150720
  Serious: Yes (Other)
  Sender: FDA-Public Use
  Company Number: DK-TEVA-498412ISR

PATIENT
  Age: 32 Year
  Sex: Male
  Weight: 78 kg

DRUGS (5)
  1. Q10-ENZYME [Concomitant]
     Indication: FATIGUE
  2. Q10-ENZYME [Concomitant]
     Indication: PAIN
  3. PERIKUM [Concomitant]
     Indication: FATIGUE
  4. PERIKUM [Concomitant]
     Indication: PAIN
  5. ATORVASTATIN ^TEVA^ [Suspect]
     Active Substance: ATORVASTATIN
     Indication: HYPERCHOLESTEROLAEMIA
     Dosage: 20 MILLIGRAM DAILY;
     Route: 048
     Dates: start: 20140410, end: 20140509

REACTIONS (10)
  - Asthenia [Unknown]
  - Headache [Unknown]
  - Vomiting [Unknown]
  - Iridocyclitis [Recovering/Resolving]
  - Vision blurred [Unknown]
  - Libido decreased [Unknown]
  - Abdominal pain upper [Unknown]
  - Myalgia [Unknown]
  - Arthralgia [Unknown]
  - Dizziness [Unknown]

NARRATIVE: CASE EVENT DATE: 20140509
